FAERS Safety Report 5164691-2 (Version None)
Quarter: 2006Q4

REPORT INFORMATION
  Report Type: 
  Country: None (occurrence: None)
  Receive Date: 20061205
  Receipt Date: 20061127
  Transmission Date: 20070319
  Serious: Yes (Other)
  Sender: FDA-Public Use
  Company Number: FR-ELI_LILLY_AND_COMPANY-FR200611005431

PATIENT
  Age: 65 Year
  Sex: Male

DRUGS (2)
  1. XIGRIS [Suspect]
     Indication: SEPSIS
     Dosage: 24 UG, EVERY HOUR
     Route: 042
     Dates: start: 20061126, end: 20061127
  2. HEPARIN [Concomitant]

REACTIONS (1)
  - THROMBOCYTOPENIA [None]
